FAERS Safety Report 7361908-0 (Version None)
Quarter: 2011Q1

REPORT INFORMATION
  Report Type: 
  Country: None (occurrence: None)
  Receive Date: 20110318
  Receipt Date: 20110309
  Transmission Date: 20110831
  Serious: Yes (Hospitalization, Other)
  Sender: FDA-Public Use
  Company Number: FR-BRISTOL-MYERS SQUIBB COMPANY-15600281

PATIENT
  Age: 76 Year
  Sex: Male

DRUGS (3)
  1. INEGY [Suspect]
     Indication: HYPERCHOLESTEROLAEMIA
     Dosage: 1DF=1 DOSE
     Route: 048
     Dates: start: 20101201, end: 20101227
  2. APROVEL TABS [Suspect]
     Indication: HYPERTENSION
     Dosage: 1DF=1 DOSE
     Route: 048
     Dates: start: 20101201
  3. TEGRETOL [Concomitant]
     Indication: EPILEPSY
     Dosage: 1DF=0.5(UNIT NOT SPECIFIED)
     Route: 048

REACTIONS (3)
  - CYTOLYTIC HEPATITIS [None]
  - ABDOMINAL PAIN [None]
  - LIPASE INCREASED [None]
